FAERS Safety Report 9929499 (Version 7)
Quarter: 2014Q2

REPORT INFORMATION
  Report Type: Spontaneous
  Country: US (occurrence: US)
  Receive Date: 20140227
  Receipt Date: 20140605
  Transmission Date: 20141212
  Serious: Yes (Hospitalization, Other)
  Sender: FDA-Public Use
  Company Number: US-PFIZER INC-2014051282

PATIENT
  Age: 23 Year
  Sex: Male

DRUGS (6)
  1. DEXTROMETHORPHAN HBR [Suspect]
     Indication: PAIN
     Dosage: 1200 MG, UNK
     Dates: start: 201108
  2. ROBITUSSIN [Suspect]
     Indication: EUPHORIC MOOD
     Dosage: UNK, 1200-1500MG/ DAY
     Route: 048
     Dates: start: 201111, end: 20140306
  3. ZOLOFT [Interacting]
  4. DELSYM [Suspect]
     Indication: EUPHORIC MOOD
     Dosage: UNK, 1200-1500MG/ DAY
     Route: 048
     Dates: start: 201111, end: 20140306
  5. ATIVAN [Concomitant]
     Dosage: UNK
  6. ZYPREXA [Concomitant]
     Dosage: UNK

REACTIONS (14)
  - Drug dependence [Unknown]
  - Arthropathy [Unknown]
  - Fall [Unknown]
  - Drug abuse [Unknown]
  - Intentional overdose [Unknown]
  - Brain injury [Unknown]
  - Hallucination [Unknown]
  - Serotonin syndrome [Unknown]
  - Dissociation [Unknown]
  - Vomiting [Unknown]
  - Rash [Unknown]
  - Condition aggravated [Unknown]
  - Abnormal behaviour [Unknown]
  - Drug interaction [Unknown]
